FAERS Safety Report 10752177 (Version 1)
Quarter: 2015Q1

REPORT INFORMATION
  Report Type: Spontaneous
  Country: US (occurrence: None)
  Receive Date: 20150129
  Receipt Date: 20150129
  Transmission Date: 20150721
  Serious: No
  Sender: FDA-Public Use
  Company Number: None

PATIENT
  Sex: Female
  Weight: 104.92 kg

DRUGS (2)
  1. DULOXETINE 60 MG ER [Suspect]
     Active Substance: DULOXETINE
     Indication: FIBROMYALGIA
     Route: 048
     Dates: start: 2009
  2. DULOXETINE 60 MG ER [Suspect]
     Active Substance: DULOXETINE
     Indication: RESTLESS LEGS SYNDROME
     Route: 048
     Dates: start: 2009

REACTIONS (3)
  - Headache [None]
  - Product substitution issue [None]
  - Muscle spasms [None]
